FAERS Safety Report 4444972-8 (Version None)
Quarter: 2004Q3

REPORT INFORMATION
  Report Type: 
  Country: None (occurrence: None)
  Receive Date: 20040907
  Receipt Date: 20040907
  Transmission Date: 20050211
  Serious: Yes (Hospitalization)
  Sender: FDA-Public Use
  Company Number: None

PATIENT
  Age: 70 Year
  Sex: Male
  Weight: 70 kg

DRUGS (8)
  1. OLANZAPINE [Suspect]
     Indication: BIPOLAR II DISORDER
     Dosage: ABOVE (30 MG PO QHS)
     Route: 048
  2. DIVALPROATE [Concomitant]
  3. ASPIRIN [Concomitant]
  4. DETROL [Concomitant]
  5. ATENOLOL [Concomitant]
  6. NEXIUM [Concomitant]
  7. PANCREALIPASE [Concomitant]
  8. FLOMAX [Concomitant]

REACTIONS (2)
  - HYPERGLYCAEMIC HYPEROSMOLAR NONKETOTIC SYNDROME [None]
  - PANCREATIC MASS [None]
